FAERS Safety Report 23952672 (Version 2)
Quarter: 2024Q2

REPORT INFORMATION
  Report Type: Spontaneous
  Country: PR (occurrence: US)
  Receive Date: 20240607
  Receipt Date: 20240614
  Transmission Date: 20240715
  Serious: No
  Sender: FDA-Public Use
  Company Number: PR-PFIZER INC-202400175871

PATIENT
  Age: 13 Year
  Sex: Male
  Weight: 40.37 kg

DRUGS (1)
  1. GENOTROPIN [Suspect]
     Active Substance: SOMATROPIN
     Dosage: 1 MG, 6 DAYS PER WEEK

REACTIONS (1)
  - Device information output issue [Unknown]
